FAERS Safety Report 20501688 (Version 1)
Quarter: 2022Q1

REPORT INFORMATION
  Report Type: Spontaneous
  Country: US (occurrence: US)
  Receive Date: 20220222
  Receipt Date: 20220222
  Transmission Date: 20220423
  Serious: No
  Sender: FDA-Public Use
  Company Number: US-SA-SAC20220217000493

PATIENT
  Age: 32 Year
  Sex: Female

DRUGS (1)
  1. DUPIXENT [Suspect]
     Active Substance: DUPILUMAB
     Dosage: 300 MG, FREQUENCY- OTHER
     Route: 058

REACTIONS (8)
  - Eye pain [Unknown]
  - Nasopharyngitis [Unknown]
  - Oropharyngeal pain [Unknown]
  - Dry eye [Unknown]
  - Sinusitis [Unknown]
  - Injection site pain [Recovered/Resolved]
  - Secretion discharge [Unknown]
  - Nasal congestion [Unknown]

NARRATIVE: CASE EVENT DATE: 20211201
